FAERS Safety Report 7608425-8 (Version None)
Quarter: 2011Q3

REPORT INFORMATION
  Report Type: 
  Country: None (occurrence: None)
  Receive Date: 20110714
  Receipt Date: 20110707
  Transmission Date: 20111222
  Serious: Yes (Hospitalization)
  Sender: FDA-Public Use
  Company Number: ES-B.I. PHARMACEUTICALS,INC./RIDGEFIELD-2011-DE-03386GD

PATIENT
  Sex: Female

DRUGS (3)
  1. ORAL ANTIDIABETIC AGENTS [Concomitant]
     Indication: DIABETES MELLITUS
     Route: 048
  2. ANTIHYPERTENSIVE AGENTS [Concomitant]
     Indication: HYPERTENSION
  3. DABIGATRAN [Suspect]
     Indication: THROMBOSIS PROPHYLAXIS
     Dosage: 220 MG
     Route: 048

REACTIONS (2)
  - HYPERTENSION [None]
  - ISCHAEMIC STROKE [None]
